FAERS Safety Report 22692648 (Version 2)
Quarter: 2024Q3

REPORT INFORMATION
  Report Type: Spontaneous
  Country: US (occurrence: US)
  Receive Date: 20230711
  Receipt Date: 20240722
  Transmission Date: 20241016
  Serious: No
  Sender: ASTELLAS
  Company Number: US-ASTELLAS-2022US028553

PATIENT
  Age: 73 Year
  Sex: Female

DRUGS (4)
  1. MYRBETRIQ [Suspect]
     Active Substance: MIRABEGRON
     Indication: Incontinence
     Route: 065
     Dates: start: 20220720
  2. LASIX [Concomitant]
     Active Substance: FUROSEMIDE
     Indication: Polyuria
     Route: 065
  3. CEVIMELINE [Concomitant]
     Active Substance: CEVIMELINE
     Indication: Eye disorder
     Dosage: UNK UNK, UNKNOWN FREQ.
     Route: 065
  4. GARLIC [Concomitant]
     Active Substance: GARLIC
     Indication: Product used for unknown indication
     Dosage: UNK UNK, UNKNOWN FREQ.
     Route: 065

REACTIONS (2)
  - Peripheral swelling [Unknown]
  - Blood glucose increased [Unknown]
